FAERS Safety Report 5140842-0 (Version None)
Quarter: 2006Q4

REPORT INFORMATION
  Report Type: 
  Country: None (occurrence: None)
  Receive Date: 20061026
  Receipt Date: 20061016
  Transmission Date: 20070319
  Serious: Yes (Hospitalization)
  Sender: FDA-Public Use
  Company Number: 2006126647

PATIENT
  Age: 91 Year
  Sex: Female

DRUGS (9)
  1. ALDACTONE [Suspect]
     Dosage: 25 MG (50 MG, INTERVAL: EVERY DAY) ORAL
     Route: 048
     Dates: end: 20051214
  2. IRBESARTAN [Suspect]
     Dosage: 150 MG (150 MG, INTERVAL: EVERY DAY) ORAL
     Route: 048
     Dates: end: 20051214
  3. KARDEGIC (ACETYLSALICYLIC LYSINE) [Suspect]
     Dosage: 75 MG (75 MG, FREQUENCY: DAILY) ORAL
     Route: 048
     Dates: end: 20051214
  4. LASIX [Suspect]
     Dosage: 120 MG (40 MG, FREQUENCY: TID) ORAL
     Route: 048
     Dates: end: 20051214
  5. PRAVASTATIN [Concomitant]
  6. NITRIDERM TTS (GLYCERYL TRINITRATE) [Concomitant]
  7. INSULATARD NPH HUMAN [Concomitant]
  8. KAYEXALATE [Concomitant]
  9. XANAX [Concomitant]

REACTIONS (19)
  - ACUTE PULMONARY OEDEMA [None]
  - ANAEMIA [None]
  - ASPARTATE AMINOTRANSFERASE INCREASED [None]
  - ASTHENIA [None]
  - BLOOD CREATININE INCREASED [None]
  - BLOOD POTASSIUM INCREASED [None]
  - BLOOD SODIUM DECREASED [None]
  - C-REACTIVE PROTEIN INCREASED [None]
  - CARDIAC FAILURE [None]
  - DIABETES MELLITUS [None]
  - FUNGAL OESOPHAGITIS [None]
  - GASTROINTESTINAL ULCER [None]
  - GENERAL PHYSICAL CONDITION ABNORMAL [None]
  - HAEMOGLOBIN INCREASED [None]
  - MYOCARDIAL INFARCTION [None]
  - NECROSIS [None]
  - OEDEMA PERIPHERAL [None]
  - PALLOR [None]
  - TROPONIN INCREASED [None]
